FAERS Safety Report 6880235-9 (Version None)
Quarter: 2010Q3

REPORT INFORMATION
  Report Type: 
  Country: None (occurrence: None)
  Receive Date: 20100728
  Receipt Date: 20100721
  Transmission Date: 20110219
  Serious: Yes (Death, Life-Threatening)
  Sender: FDA-Public Use
  Company Number: US-BRACCO-004033

PATIENT
  Age: 67 Year
  Sex: Male
  Weight: 98 kg

DRUGS (6)
  1. ISOVUE-128 [Suspect]
     Indication: CHEST X-RAY ABNORMAL
     Route: 042
     Dates: start: 20100211, end: 20100211
  2. ISOVUE-128 [Suspect]
     Indication: COMPUTERISED TOMOGRAM
     Route: 042
     Dates: start: 20100211, end: 20100211
  3. PROAIR HFA [Concomitant]
  4. TARKA [Concomitant]
  5. ADVAIR DISKUS 100/50 [Concomitant]
  6. INDAPAMIDE [Concomitant]

REACTIONS (1)
  - ANAPHYLACTIC SHOCK [None]
